FAERS Safety Report 8459817-9 (Version None)
Quarter: 2012Q2

REPORT INFORMATION
  Report Type: 
  Country: None (occurrence: None)
  Receive Date: 20120622
  Receipt Date: 20120615
  Transmission Date: 20120825
  Serious: Yes (Other)
  Sender: FDA-Public Use
  Company Number: PHHY2011CA65418

PATIENT
  Sex: Female

DRUGS (6)
  1. VITAMIN D [Concomitant]
  2. MIGREX PINK [Concomitant]
  3. GILENYA [Suspect]
     Indication: RELAPSING-REMITTING MULTIPLE SCLEROSIS
     Dosage: 0.5 MG, QD
     Route: 048
     Dates: start: 20110620, end: 20120601
  4. TEGRETOL [Concomitant]
  5. AMANTADINE HCL [Concomitant]
  6. ATIVAN [Concomitant]

REACTIONS (6)
  - ANAEMIA [None]
  - PARAESTHESIA [None]
  - ORTHOSTATIC HYPOTENSION [None]
  - SYNCOPE [None]
  - HYPOAESTHESIA [None]
  - VOMITING [None]
